FAERS Safety Report 20511646 (Version 1)
Quarter: 2022Q1

REPORT INFORMATION
  Report Type: Spontaneous
  Country: US (occurrence: None)
  Receive Date: 20220224
  Receipt Date: 20220224
  Transmission Date: 20220423
  Serious: No
  Sender: FDA-Public Use
  Company Number: 2022A048868

PATIENT
  Sex: Female
  Weight: 98.9 kg

DRUGS (1)
  1. TAGRISSO [Suspect]
     Active Substance: OSIMERTINIB
     Indication: Brain neoplasm malignant
     Route: 048

REACTIONS (3)
  - Hypersensitivity [Recovering/Resolving]
  - Headache [Recovering/Resolving]
  - Product dose omission issue [Recovering/Resolving]
